FAERS Safety Report 19440348 (Version 1)
Quarter: 2021Q2

REPORT INFORMATION
  Report Type: Spontaneous
  Country: CN (occurrence: CN)
  Receive Date: 20210621
  Receipt Date: 20210621
  Transmission Date: 20210717
  Serious: Yes (Life-Threatening, Other)
  Sender: FDA-Public Use
  Company Number: CN-009507513-2106CHN003860

PATIENT
  Age: 30 Year
  Sex: Female

DRUGS (5)
  1. NORVANCOMYCIN [Suspect]
     Active Substance: NORVANCOMYCIN
     Indication: PYREXIA
     Dosage: WITHIN 2 WEEKS
  2. MOXIFLOXACIN HYDROCHLORIDE. [Suspect]
     Active Substance: MOXIFLOXACIN HYDROCHLORIDE
     Indication: PYREXIA
     Dosage: WITHIN 2 WEEKS
  3. IMIPENEM AND CILASTATIN [Suspect]
     Active Substance: CILASTATIN SODIUM\IMIPENEM
     Indication: PYREXIA
     Dosage: WITHIN 2 WEEKS
  4. AZITHROMYCIN ANHYDROUS. [Suspect]
     Active Substance: AZITHROMYCIN ANHYDROUS
     Indication: PYREXIA
     Dosage: WITHIN 2 WEEKS
  5. VORICONAZOLE. [Suspect]
     Active Substance: VORICONAZOLE
     Indication: PYREXIA
     Dosage: WITHIN 2 WEEKS

REACTIONS (3)
  - Torsade de pointes [Recovered/Resolved]
  - Product use in unapproved indication [Unknown]
  - Long QT syndrome [Recovered/Resolved]
